FAERS Safety Report 18382148 (Version 1)
Quarter: 2020Q4

REPORT INFORMATION
  Report Type: Spontaneous
  Country: US (occurrence: US)
  Receive Date: 20201013
  Receipt Date: 20201013
  Transmission Date: 20210114
  Serious: No
  Sender: FDA-Public Use
  Company Number: None

PATIENT
  Age: 60 Year
  Sex: Female
  Weight: 74.25 kg

DRUGS (3)
  1. ESTRADIOL 0.05MG/DAY TRANSDERMAL SYSTEM [Suspect]
     Active Substance: ESTRADIOL
     Indication: MENOPAUSAL SYMPTOMS
     Dosage: ?          QUANTITY:8 PATCH(ES);OTHER FREQUENCY:2X/WEEK;?
     Route: 062
     Dates: start: 20200304, end: 20200906
  2. PROGESTERONE. [Concomitant]
     Active Substance: PROGESTERONE
  3. SYNTHROID [Concomitant]
     Active Substance: LEVOTHYROXINE SODIUM

REACTIONS (6)
  - Mood altered [None]
  - Metrorrhagia [None]
  - Drug ineffective [None]
  - Breast tenderness [None]
  - Product substitution issue [None]
  - Urinary incontinence [None]

NARRATIVE: CASE EVENT DATE: 20200317
